FAERS Safety Report 17816335 (Version 1)
Quarter: 2020Q2

REPORT INFORMATION
  Report Type: Spontaneous
  Country: AT (occurrence: AT)
  Receive Date: 20200522
  Receipt Date: 20200522
  Transmission Date: 20200714
  Serious: Yes (Hospitalization)
  Sender: FDA-Public Use
  Company Number: AT-BAYER-2020-088474

PATIENT
  Age: 50 Year
  Sex: Female

DRUGS (2)
  1. ULTRAVIST [Suspect]
     Active Substance: IOPROMIDE
     Dosage: I.V.
     Route: 042
     Dates: start: 20191001
  2. ESTROFEM [ESTRADIOL] [Concomitant]
     Active Substance: ESTRADIOL
     Route: 048

REACTIONS (7)
  - Idiosyncratic drug reaction [Recovered/Resolved]
  - Hypoacusis [Recovered/Resolved]
  - Angioedema [Recovered/Resolved]
  - Dyspnoea [Recovered/Resolved]
  - Visual impairment [Recovered/Resolved]
  - Pruritus [Recovered/Resolved]
  - Rash [Recovered/Resolved]

NARRATIVE: CASE EVENT DATE: 20191001
